FAERS Safety Report 6726576-7 (Version None)
Quarter: 2010Q2

REPORT INFORMATION
  Report Type: 
  Country: None (occurrence: None)
  Receive Date: 20100514
  Receipt Date: 20100503
  Transmission Date: 20101027
  Serious: Yes (Death)
  Sender: FDA-Public Use
  Company Number: DE-ELI_LILLY_AND_COMPANY-DE201005000425

PATIENT
  Sex: Female

DRUGS (3)
  1. ZYPREXA [Suspect]
     Indication: SCHIZOPHRENIA
     Dosage: 20 MG, UNK
     Route: 048
     Dates: start: 20090602
  2. PERAZINE [Concomitant]
     Dosage: 200 MG, DAILY (1/D)
  3. LORMETAZEPAM [Concomitant]
     Dosage: 2 MG, UNK

REACTIONS (1)
  - DEATH [None]
